FAERS Safety Report 10378769 (Version 2)
Quarter: 2015Q1

REPORT INFORMATION
  Report Type: Spontaneous
  Country: US (occurrence: US)
  Receive Date: 20140812
  Receipt Date: 20150204
  Transmission Date: 20150720
  Serious: No
  Sender: FDA-Public Use
  Company Number: US-GILEAD-2014-0111566

PATIENT
  Age: 7 Year
  Sex: Male

DRUGS (4)
  1. REMODULIN [Concomitant]
     Active Substance: TREPROSTINIL
  2. LETAIRIS [Suspect]
     Active Substance: AMBRISENTAN
     Indication: HEART DISEASE CONGENITAL
  3. ADCIRCA [Concomitant]
     Active Substance: TADALAFIL
  4. LETAIRIS [Suspect]
     Active Substance: AMBRISENTAN
     Indication: PULMONARY HYPERTENSION
     Dosage: 1.25 MG, QD
     Route: 065
     Dates: start: 20120719

REACTIONS (3)
  - Vomiting [Unknown]
  - Nausea [Unknown]
  - Pain [Unknown]
